FAERS Safety Report 4544282-4 (Version None)
Quarter: 2004Q4

REPORT INFORMATION
  Report Type: 
  Country: None (occurrence: None)
  Receive Date: 20041230
  Receipt Date: 20041222
  Transmission Date: 20050328
  Serious: Yes (Hospitalization)
  Sender: FDA-Public Use
  Company Number: 2004-11-0624

PATIENT
  Age: 42 Year
  Sex: Female
  Weight: 58 kg

DRUGS (8)
  1. REBETOL [Suspect]
     Indication: HEPATITIS C
     Dosage: 600 MG ORAL
     Route: 048
     Dates: start: 20040916, end: 20041020
  2. INTRON A [Suspect]
     Indication: HEPATITIS C
     Dosage: SEE IMAGE
     Route: 030
     Dates: start: 20040916, end: 20040929
  3. INTRON A [Suspect]
     Indication: HEPATITIS C
     Dosage: SEE IMAGE
     Route: 030
     Dates: start: 20041001, end: 20041020
  4. URSO 250 [Concomitant]
  5. SELBEX [Concomitant]
  6. FERROUS CITRATE [Concomitant]
  7. MANIDIPINE [Concomitant]
  8. MAGNESIUM OXIDE [Concomitant]

REACTIONS (2)
  - DIPLOPIA [None]
  - IIIRD NERVE PARALYSIS [None]
